FAERS Safety Report 8528942-6 (Version None)
Quarter: 2012Q3

REPORT INFORMATION
  Report Type: 
  Country: None (occurrence: None)
  Receive Date: 20120723
  Receipt Date: 20120717
  Transmission Date: 20120928
  Serious: No
  Sender: FDA-Public Use
  Company Number: US-PFIZER INC-2012152195

PATIENT
  Sex: Male

DRUGS (1)
  1. SUTENT [Suspect]
     Indication: COLON CANCER METASTATIC
     Dosage: 25 MG 1X/DAY, X 14 D OF 21 D CYCLE
     Route: 048
     Dates: start: 20120419, end: 20120619

REACTIONS (2)
  - COLON CANCER METASTATIC [None]
  - DISEASE PROGRESSION [None]
